FAERS Safety Report 16927821 (Version 12)
Quarter: 2020Q4

REPORT INFORMATION
  Report Type: Spontaneous
  Country: CA (occurrence: CA)
  Receive Date: 20191017
  Receipt Date: 20201130
  Transmission Date: 20210113
  Serious: Yes (Other)
  Sender: FDA-Public Use
  Company Number: CA-CELLTRION INC.-2019CA024764

PATIENT

DRUGS (10)
  1. INFLECTRA [Suspect]
     Active Substance: INFLIXIMAB-DYYB
     Dosage: 200 MG AT WEEK 2, 6, THEN EVERY 6 WEEKS
     Route: 042
     Dates: start: 20200529
  2. PREDNISONE. [Concomitant]
     Active Substance: PREDNISONE
     Dosage: UNK
     Route: 065
  3. INFLECTRA [Suspect]
     Active Substance: INFLIXIMAB-DYYB
     Indication: RHEUMATOID ARTHRITIS
     Dosage: 200 MG, EVERY 0, 2, 6 WEEKS, THEN EVERY 6 WEEKS
     Route: 042
     Dates: start: 20191003, end: 20191003
  4. INFLECTRA [Suspect]
     Active Substance: INFLIXIMAB-DYYB
     Dosage: 400 MG EVERY 6 WEEKS
     Route: 042
     Dates: start: 20201120
  5. AZITHROMYCIN ANHYDROUS. [Concomitant]
     Active Substance: AZITHROMYCIN ANHYDROUS
     Dosage: UNK, DOSE, FOR 5 DAYS
     Route: 048
     Dates: start: 20191019
  6. METHOTREXATE. [Concomitant]
     Active Substance: METHOTREXATE
     Dosage: UNK
     Route: 065
  7. INFLECTRA [Suspect]
     Active Substance: INFLIXIMAB-DYYB
     Dosage: 200 MG, EVERY 0, 2, 6 WEEKS, THEN EVERY 6 WEEKS
     Route: 042
     Dates: start: 20191122, end: 20191122
  8. AZITHROMYCIN ANHYDROUS. [Concomitant]
     Active Substance: AZITHROMYCIN ANHYDROUS
     Indication: INFLUENZA
     Dosage: UNK
     Route: 065
     Dates: start: 202003
  9. INFLECTRA [Suspect]
     Active Substance: INFLIXIMAB-DYYB
     Dosage: 200 MG AT WEEK 2, 6, THEN EVERY 6 WEEKS
     Route: 042
     Dates: start: 20200814
  10. INFLECTRA [Suspect]
     Active Substance: INFLIXIMAB-DYYB
     Dosage: 200 MG AT WEEK 2, 6, THEN EVERY 6 WEEKS
     Route: 042
     Dates: start: 20200703

REACTIONS (33)
  - Gastroenteritis viral [Recovered/Resolved]
  - Suspected COVID-19 [Unknown]
  - Condition aggravated [Unknown]
  - Blood pressure fluctuation [Not Recovered/Not Resolved]
  - Influenza like illness [Recovered/Resolved]
  - Diarrhoea [Not Recovered/Not Resolved]
  - Viral infection [Unknown]
  - Sinusitis [Not Recovered/Not Resolved]
  - Pyrexia [Recovered/Resolved]
  - Productive cough [Not Recovered/Not Resolved]
  - Oropharyngeal pain [Unknown]
  - Influenza [Recovered/Resolved]
  - Paranasal sinus discomfort [Recovered/Resolved]
  - Infection [Not Recovered/Not Resolved]
  - Off label use [Unknown]
  - Product use issue [Unknown]
  - Viral upper respiratory tract infection [Not Recovered/Not Resolved]
  - Dizziness [Recovered/Resolved]
  - Chills [Unknown]
  - Balance disorder [Unknown]
  - Rash [Recovered/Resolved]
  - Hypertension [Unknown]
  - Illness [Not Recovered/Not Resolved]
  - Dysphonia [Recovered/Resolved]
  - Ear discomfort [Recovered/Resolved]
  - Rhinorrhoea [Unknown]
  - Epistaxis [Not Recovered/Not Resolved]
  - Nasopharyngitis [Recovered/Resolved]
  - Wheezing [Not Recovered/Not Resolved]
  - Nasal congestion [Not Recovered/Not Resolved]
  - Cough [Not Recovered/Not Resolved]
  - Headache [Unknown]
  - Heart rate decreased [Unknown]

NARRATIVE: CASE EVENT DATE: 201910
